FAERS Safety Report 20611870 (Version 6)
Quarter: 2022Q3

REPORT INFORMATION
  Report Type: Report from Study
  Country: US (occurrence: US)
  Receive Date: 20220318
  Receipt Date: 20220910
  Transmission Date: 20221026
  Serious: No
  Sender: FDA-Public Use
  Company Number: US-NOVARTISTESTPH-NVSC2022US062376

PATIENT
  Sex: Female

DRUGS (3)
  1. ENTRESTO [Suspect]
     Active Substance: SACUBITRIL\VALSARTAN
     Indication: Cardiac failure
     Dosage: 1 DOSAGE FORM , BID (49/51 MG)
     Route: 048
  2. ENTRESTO [Suspect]
     Active Substance: SACUBITRIL\VALSARTAN
     Dosage: 200 MG, UNKNOWN
     Route: 065
  3. ENTRESTO [Suspect]
     Active Substance: SACUBITRIL\VALSARTAN
     Dosage: 97 MG, BID (97/103 MG)
     Route: 048
     Dates: start: 202201

REACTIONS (8)
  - Arteriosclerosis [Unknown]
  - COVID-19 [Unknown]
  - Dizziness [Recovering/Resolving]
  - Fatigue [Unknown]
  - Dysphonia [Unknown]
  - Hypersensitivity [Unknown]
  - Throat clearing [Unknown]
  - Hypotension [Unknown]
